FAERS Safety Report 4877493-9 (Version None)
Quarter: 2006Q1

REPORT INFORMATION
  Report Type: 
  Country: None (occurrence: None)
  Receive Date: 20060109
  Receipt Date: 20051229
  Transmission Date: 20060701
  Serious: Yes (Hospitalization)
  Sender: FDA-Public Use
  Company Number: Q05-056

PATIENT
  Sex: Male
  Weight: 83.4619 kg

DRUGS (2)
  1. VELCADE [Suspect]
     Indication: MULTIPLE MYELOMA
     Dosage: 2.6 MG IVP
     Dates: start: 20051213, end: 20051216
  2. SAMARIUM [Suspect]
     Indication: MULTIPLE MYELOMA
     Dosage: 21 MCI
     Dates: start: 20051215

REACTIONS (4)
  - CHILLS [None]
  - MYALGIA [None]
  - PYREXIA [None]
  - VIRAL INFECTION [None]
